FAERS Safety Report 22036431 (Version 2)
Quarter: 2023Q2

REPORT INFORMATION
  Report Type: Spontaneous
  Country: GB (occurrence: GB)
  Receive Date: 20230225
  Receipt Date: 20230401
  Transmission Date: 20230721
  Serious: Yes (Death, Hospitalization, Other)
  Sender: FDA-Public Use
  Company Number: GB-AUROBINDO-AUR-APL-2023-008622

PATIENT

DRUGS (24)
  1. ANASTROZOLE [Suspect]
     Active Substance: ANASTROZOLE
     Indication: HER2 positive breast cancer
     Dosage: 1 MILLIGRAM, ONCE A DAY (1 MILLIGRAM, QD)
     Route: 048
     Dates: start: 201510
  2. ANASTROZOLE [Suspect]
     Active Substance: ANASTROZOLE
     Indication: Breast cancer metastatic
  3. CYCLOPHOSPHAMIDE [Suspect]
     Active Substance: CYCLOPHOSPHAMIDE
     Indication: Breast cancer metastatic
     Dosage: 900 MILLIGRAM
     Route: 042
     Dates: start: 20150305, end: 20150305
  4. CYCLOPHOSPHAMIDE [Suspect]
     Active Substance: CYCLOPHOSPHAMIDE
     Indication: HER2 positive breast cancer
  5. DENOSUMAB [Suspect]
     Active Substance: DENOSUMAB
     Indication: Metastases to bone
     Dosage: 120 MILLIGRAM (120 MG, Q4W)
     Route: 058
     Dates: start: 20150326, end: 20160728
  6. DENOSUMAB [Suspect]
     Active Substance: DENOSUMAB
     Indication: HER2 positive breast cancer
     Dosage: 120 MILLIGRAM (120 MG, Q4W)
     Route: 058
     Dates: start: 20151003
  7. DENOSUMAB [Suspect]
     Active Substance: DENOSUMAB
     Dosage: 120 MILLIGRAM (120 MG, Q4W)
     Route: 058
     Dates: start: 20151031, end: 20160728
  8. DOCETAXEL [Suspect]
     Active Substance: DOCETAXEL
     Indication: HER2 positive breast cancer
     Dosage: 140 MILLIGRAM (140 MG, Q3W)
     Route: 042
     Dates: start: 20150326, end: 20150709
  9. DOCETAXEL [Suspect]
     Active Substance: DOCETAXEL
     Indication: Breast cancer metastatic
     Dosage: 130 MILLIGRAM (130 MG, EVERY 3 WEEKS (DRUG DISCONTINUED PLANNED NUMBER OF CYCLES COMPLETED)
     Route: 042
     Dates: start: 20150709, end: 20150820
  10. DOCETAXEL [Suspect]
     Active Substance: DOCETAXEL
     Dosage: 130 MILLIGRAM (130 MG, Q3W (DRUG DISCONTINUED PLANNED NUMBER OF CYCLES COMPLETED)
     Route: 042
     Dates: start: 20150820
  11. EPIRUBICIN [Suspect]
     Active Substance: EPIRUBICIN
     Indication: HER2 positive breast cancer
     Dosage: 180 MILLIGRAM(180 MG, Q3W)
     Route: 042
     Dates: start: 20150305, end: 20150305
  12. EPIRUBICIN [Suspect]
     Active Substance: EPIRUBICIN
     Indication: Breast cancer metastatic
  13. PERTUZUMAB [Suspect]
     Active Substance: PERTUZUMAB
     Indication: HER2 positive breast cancer
     Dosage: 840 MILLIGRAM (840 MG LOADING DOSE)
     Route: 042
     Dates: start: 20150326, end: 20150416
  14. PERTUZUMAB [Suspect]
     Active Substance: PERTUZUMAB
     Indication: Breast cancer metastatic
     Dosage: 420 MILLIGRAM (420 MG, TIW MAINTENANCE DOSE)
     Route: 042
     Dates: start: 20150416, end: 20160822
  15. PERTUZUMAB [Suspect]
     Active Substance: PERTUZUMAB
     Dosage: 420 MILLIGRAM (420 MG, Q3W)
     Route: 042
     Dates: start: 20160919
  16. TRASTUZUMAB [Suspect]
     Active Substance: TRASTUZUMAB
     Indication: Breast cancer metastatic
     Dosage: 600 MILLIGRAM (LOADING DOSE(600 MG)
     Route: 042
     Dates: start: 20150326, end: 20150416
  17. TRASTUZUMAB [Suspect]
     Active Substance: TRASTUZUMAB
     Indication: HER2 positive breast cancer
     Dosage: 470 MILLIGRAM (MAINTAINANCE DOSE)
     Route: 042
     Dates: start: 20150416, end: 20150719
  18. TRASTUZUMAB [Suspect]
     Active Substance: TRASTUZUMAB
     Dosage: 464 MILLIGRAM (464 MG, Q3W)
     Route: 042
     Dates: start: 20150709, end: 20151022
  19. TRASTUZUMAB [Suspect]
     Active Substance: TRASTUZUMAB
     Dosage: 450 MILLIGRAM (450 MG, Q3W)
     Route: 042
     Dates: start: 20151022, end: 20160822
  20. TRASTUZUMAB [Suspect]
     Active Substance: TRASTUZUMAB
     Dosage: 450 MILLIGRAM (450 MG, Q3W)
     Route: 042
     Dates: start: 20160912
  21. FLUOROURACIL [Suspect]
     Active Substance: FLUOROURACIL
     Indication: Breast cancer metastatic
     Dosage: 2700 MILLIGRAM (900 MG, TID)
     Route: 042
     Dates: start: 20150305, end: 20150305
  22. FLUOROURACIL [Suspect]
     Active Substance: FLUOROURACIL
     Indication: HER2 positive breast cancer
     Dosage: 900 MG, EVERY 3 WEEKS
     Route: 042
     Dates: start: 20150305, end: 20150305
  23. CHLORPHENIRAMINE MALEATE [Concomitant]
     Active Substance: CHLORPHENIRAMINE MALEATE
     Indication: Product used for unknown indication
     Dosage: 10 MILLIGRAM (10 MG PRIOR TO EACH TRASTUZUMAB CYCLE)
     Route: 042
     Dates: start: 20150326
  24. ACETAMINOPHEN [Concomitant]
     Active Substance: ACETAMINOPHEN
     Indication: Product used for unknown indication
     Dosage: 100 MILLIGRAM (1000 MG PRIOR TO EACH TRASTUZUMAB CYCLE)
     Route: 048
     Dates: start: 20150326

REACTIONS (16)
  - Disease progression [Fatal]
  - Nasopharyngitis [Recovered/Resolved]
  - Neuropathy peripheral [Recovered/Resolved]
  - Gastroenteritis viral [Recovered/Resolved]
  - Decreased appetite [Recovered/Resolved]
  - Catheter site bruise [Recovered/Resolved]
  - Oropharyngeal pain [Recovered/Resolved]
  - Cough [Recovered/Resolved]
  - Diarrhoea [Not Recovered/Not Resolved]
  - Fatigue [Recovered/Resolved]
  - Pyrexia [Recovered/Resolved]
  - Headache [Recovered/Resolved]
  - Arthralgia [Recovered/Resolved]
  - Mucosal inflammation [Recovered/Resolved]
  - Myalgia [Recovered/Resolved]
  - Vomiting [Recovered/Resolved]

NARRATIVE: CASE EVENT DATE: 20150709
